FAERS Safety Report 8300090-X (Version None)
Quarter: 2012Q2

REPORT INFORMATION
  Report Type: 
  Country: None (occurrence: None)
  Receive Date: 20120417
  Receipt Date: 20120405
  Transmission Date: 20120825
  Serious: Yes (Other)
  Sender: FDA-Public Use
  Company Number: 2010JP005968

PATIENT
  Age: 43 Year
  Sex: Female
  Weight: 51.8 kg

DRUGS (13)
  1. ISODINE (POVIDONE-IODINE) [Concomitant]
  2. EPADEL (ETHYLICOSAPENTATE) [Concomitant]
  3. KETOPROFEN [Concomitant]
  4. TACROLIMUS [Suspect]
     Indication: LUPUS NEPHRITIS
     Dosage: 1.5 MG,,/D, ORAL; 1 MG, /D, ORAL; 2 MG, /D, ORAL
     Route: 048
     Dates: start: 20100416
  5. TACROLIMUS [Suspect]
     Indication: LUPUS NEPHRITIS
     Dosage: 1.5 MG,,/D, ORAL; 1 MG, /D, ORAL; 2 MG, /D, ORAL
     Route: 048
     Dates: start: 20091225, end: 20100415
  6. TACROLIMUS [Suspect]
     Indication: LUPUS NEPHRITIS
     Dosage: 1.5 MG,,/D, ORAL; 1 MG, /D, ORAL; 2 MG, /D, ORAL
     Route: 048
     Dates: start: 20091113, end: 20091224
  7. LIPITOR [Concomitant]
  8. PREDNISOLONE [Suspect]
     Indication: LUPUS NEPHRITIS
     Dosage: 50 MG, /D, ORAL; 15 MG, /D, ORAL; 8 MG, /D, ORAL; 7 MG, /D, ORAL
     Dates: start: 20100806, end: 20110304
  9. PREDNISOLONE [Suspect]
     Indication: LUPUS NEPHRITIS
     Dosage: 50 MG, /D, ORAL; 15 MG, /D, ORAL; 8 MG, /D, ORAL; 7 MG, /D, ORAL
     Dates: start: 20110305
  10. PREDNISOLONE [Suspect]
     Indication: LUPUS NEPHRITIS
     Dosage: 50 MG, /D, ORAL; 15 MG, /D, ORAL; 8 MG, /D, ORAL; 7 MG, /D, ORAL
     Dates: end: 20100805
  11. PREDNISOLONE [Suspect]
     Indication: LUPUS NEPHRITIS
     Dosage: 50 MG, /D, ORAL; 15 MG, /D, ORAL; 8 MG, /D, ORAL; 7 MG, /D, ORAL
     Dates: start: 20090401
  12. FOSAMAX [Concomitant]
  13. LANSOPRAZOLE [Concomitant]

REACTIONS (1)
  - OSTEONECROSIS [None]
